FAERS Safety Report 8889406 (Version 1)
Quarter: 2012Q4

REPORT INFORMATION
  Report Type: Spontaneous
  Country: US (occurrence: None)
  Receive Date: 20121002
  Receipt Date: 20121002
  Transmission Date: 20130627
  Serious: Yes (Other)
  Sender: FDA-Public Use
  Company Number: RB-38394-2012

PATIENT
  Age: 30 Year
  Sex: Female

DRUGS (5)
  1. SUBOXONE [Suspect]
     Indication: DRUG DEPENDENCE
     Route: 060
     Dates: start: 20120123, end: 20120131
  2. SUBOXONE [Suspect]
     Indication: DRUG DEPENDENCE
  3. BUPRENORPHINE [Suspect]
     Indication: DRUG DEPENDENCE
     Route: 060
     Dates: start: 20120201, end: 20120205
  4. BUPRENORPHINE [Suspect]
     Indication: DRUG DEPENDENCE
     Route: 060
     Dates: start: 20120206, end: 20120213
  5. KLONOPIN [Concomitant]

REACTIONS (3)
  - Oedema peripheral [None]
  - Weight increased [None]
  - Nausea [None]
